FAERS Safety Report 12729447 (Version 1)
Quarter: 2016Q3

REPORT INFORMATION
  Report Type: Spontaneous
  Country: US (occurrence: US)
  Receive Date: 20160909
  Receipt Date: 20160909
  Transmission Date: 20161109
  Serious: Yes (Hospitalization, Disabling, Other)
  Sender: FDA-Public Use
  Company Number: US-009507513-1112USA01466

PATIENT
  Sex: Female
  Weight: 59.87 kg

DRUGS (4)
  1. FOSAMAX [Suspect]
     Active Substance: ALENDRONATE SODIUM
     Dosage: 70 MG, QW
     Route: 048
     Dates: start: 200305, end: 200602
  2. BONIVA [Suspect]
     Active Substance: IBANDRONATE SODIUM
     Indication: OSTEOPENIA
     Dosage: 150 MG, QM
     Route: 048
     Dates: start: 200603
  3. SYNTHROID [Concomitant]
     Active Substance: LEVOTHYROXINE SODIUM
     Indication: AUTOIMMUNE THYROIDITIS
     Dosage: 0.75 MG, QD
     Dates: start: 1985
  4. FOSAMAX [Suspect]
     Active Substance: ALENDRONATE SODIUM
     Indication: OSTEOPENIA
     Dosage: 35 MG, QW
     Route: 048
     Dates: start: 200003, end: 200304

REACTIONS (52)
  - Tooth disorder [Unknown]
  - Anxiety [Not Recovered/Not Resolved]
  - Mitral valve prolapse [Unknown]
  - Ear disorder [Recovered/Resolved]
  - Anaemia postoperative [Unknown]
  - Tricuspid valve incompetence [Unknown]
  - Tonsillar disorder [Unknown]
  - Appendix disorder [Unknown]
  - Coccydynia [Unknown]
  - Urinary tract infection [Recovered/Resolved]
  - Renal cyst [Unknown]
  - Cardiac arrest [Unknown]
  - Orthostatic hypotension [Unknown]
  - Trigger finger [Not Recovered/Not Resolved]
  - Endometrial adenocarcinoma [Unknown]
  - Foot fracture [Unknown]
  - Osteoporosis [Unknown]
  - Electrocardiogram ST-T change [Unknown]
  - Paraesthesia [Unknown]
  - Motor dysfunction [Unknown]
  - Femur fracture [Unknown]
  - Fracture delayed union [Unknown]
  - Pulmonary valve incompetence [Unknown]
  - Urine abnormality [Unknown]
  - Uterine leiomyoma [Unknown]
  - Varicose veins vaginal [Unknown]
  - Aortic valve incompetence [Unknown]
  - Cardiac murmur [Unknown]
  - Blood cholesterol increased [Unknown]
  - Urinary tract infection [Unknown]
  - Nephrolithiasis [Unknown]
  - Hepatic cyst [Unknown]
  - Aortic calcification [Unknown]
  - Chest pain [Unknown]
  - Depression [Unknown]
  - Insomnia [Unknown]
  - Sinus tachycardia [Unknown]
  - Dehydration [Unknown]
  - Rheumatoid arthritis [Unknown]
  - Hypothyroidism [Unknown]
  - Muscular weakness [Unknown]
  - Musculoskeletal disorder [Unknown]
  - Fatigue [Unknown]
  - Genital herpes [Unknown]
  - Low turnover osteopathy [Unknown]
  - Tooth disorder [Unknown]
  - Urine odour abnormal [Unknown]
  - Eye disorder [Unknown]
  - Ear pain [Recovered/Resolved]
  - Fall [Unknown]
  - Gout [Unknown]
  - Irritable bowel syndrome [Unknown]

NARRATIVE: CASE EVENT DATE: 20020327
